FAERS Safety Report 9066682 (Version 2)
Quarter: 2013Q1

REPORT INFORMATION
  Report Type: Report from Study
  Country: VN (occurrence: VN)
  Receive Date: 20130214
  Receipt Date: 20130215
  Transmission Date: 20140127
  Serious: Yes (Other)
  Sender: FDA-Public Use
  Company Number: VN-ROCHE-1188327

PATIENT
  Age: 39 None
  Sex: Male
  Weight: 51 kg

DRUGS (3)
  1. PEG-INTERFERON ALFA 2A [Suspect]
     Indication: HEPATITIS B
     Route: 058
     Dates: start: 20121012, end: 20121228
  2. BIPHENYL DIMETHYL DICARBOXYLATE [Concomitant]
     Route: 048
     Dates: start: 20121130
  3. COCAINE [Concomitant]
     Route: 065
     Dates: start: 20121116, end: 20121121

REACTIONS (2)
  - Hepatitis B DNA increased [Unknown]
  - Hepatitis B surface antigen positive [Unknown]
